FAERS Safety Report 9791323 (Version 1)
Quarter: 2014Q1

REPORT INFORMATION
  Report Type: Spontaneous
  Country: AU (occurrence: AU)
  Receive Date: 20140101
  Receipt Date: 20140101
  Transmission Date: 20141002
  Serious: Yes (Other)
  Sender: FDA-Public Use
  Company Number: AU-ROCHE-1324233

PATIENT
  Age: 55 Year
  Sex: Female

DRUGS (6)
  1. HERCEPTIN [Suspect]
     Indication: BREAST CANCER METASTATIC
     Route: 065
  2. PERJETA [Suspect]
     Indication: PRODUCT USED FOR UNKNOWN INDICATION
     Route: 065
  3. DOCETAXEL [Suspect]
     Indication: PRODUCT USED FOR UNKNOWN INDICATION
     Route: 065
  4. DOXORUBICIN [Concomitant]
  5. CYCLOPHOSPHAMIDE [Concomitant]
  6. PACLITAXEL [Concomitant]

REACTIONS (5)
  - Metastases to liver [Unknown]
  - Metastases to lung [Unknown]
  - Febrile neutropenia [Unknown]
  - Diarrhoea [Recovered/Resolved]
  - Dyspnoea [Unknown]
